FAERS Safety Report 21508824 (Version 4)
Quarter: 2022Q4

REPORT INFORMATION
  Report Type: Spontaneous
  Country: SA (occurrence: SA)
  Receive Date: 20221026
  Receipt Date: 20221118
  Transmission Date: 20230113
  Serious: Yes (Death, Hospitalization, Other)
  Sender: FDA-Public Use
  Company Number: SA-002147023-NVSC2022SA232484

PATIENT

DRUGS (1)
  1. RUXOLITINIB [Suspect]
     Active Substance: RUXOLITINIB
     Indication: Myelofibrosis
     Dosage: 5 MG, BID
     Route: 048
     Dates: start: 20220220, end: 20220321

REACTIONS (2)
  - Urinary tract infection [Not Recovered/Not Resolved]
  - Urosepsis [Fatal]

NARRATIVE: CASE EVENT DATE: 20220321
